FAERS Safety Report 4651739-4 (Version None)
Quarter: 2005Q2

REPORT INFORMATION
  Report Type: 
  Country: None (occurrence: None)
  Receive Date: 20050404
  Receipt Date: 20041130
  Transmission Date: 20051028
  Serious: No
  Sender: FDA-Public Use
  Company Number: USA041284914

PATIENT
  Sex: Female

DRUGS (2)
  1. CYMBALTA [Suspect]
     Indication: DEPRESSION
     Dosage: 90 MG DAY
     Dates: start: 20041120
  2. LUVOX [Concomitant]

REACTIONS (5)
  - ANXIETY [None]
  - CRYING [None]
  - DECREASED ACTIVITY [None]
  - EMOTIONAL DISTRESS [None]
  - PRESCRIBED OVERDOSE [None]
